FAERS Safety Report 16003809 (Version 1)
Quarter: 2019Q1

REPORT INFORMATION
  Report Type: Spontaneous
  Country: FR (occurrence: FR)
  Receive Date: 20190226
  Receipt Date: 20190226
  Transmission Date: 20190418
  Serious: Yes (Hospitalization)
  Sender: FDA-Public Use
  Company Number: FR-ACCORD-108999

PATIENT
  Age: 51 Year
  Sex: Male
  Weight: 81 kg

DRUGS (14)
  1. RAMIPRIL. [Suspect]
     Active Substance: RAMIPRIL
     Route: 048
     Dates: start: 20180629, end: 20180629
  2. DUPHALAC [Concomitant]
     Active Substance: LACTULOSE
  3. KARDEGIC [Concomitant]
     Active Substance: ASPIRIN DL-LYSINE
     Dosage: STRENGTH : 75 MG
  4. PRINCI B [Concomitant]
  5. MELATONIN [Concomitant]
     Active Substance: MELATONIN
  6. LANSOPRAZOLE. [Concomitant]
     Active Substance: LANSOPRAZOLE
  7. PREGABALIN. [Concomitant]
     Active Substance: PREGABALIN
  8. DEXERYL [Concomitant]
  9. MAGNESPASMYL [Concomitant]
     Dosage: STRENGTH : 47.4 MG
  10. NEFOPAM [Suspect]
     Active Substance: NEFOPAM
     Route: 048
     Dates: start: 20180629, end: 20180629
  11. AMLODIPINE [Concomitant]
     Active Substance: AMLODIPINE BESYLATE
  12. TOVIAZ [Concomitant]
     Active Substance: FESOTERODINE FUMARATE
  13. BISOCE [Concomitant]
     Active Substance: BISOPROLOL
     Dosage: STRENGTH : 5 MG
  14. XATRAL LP [Concomitant]
     Active Substance: ALFUZOSIN
     Dosage: STRENGTH : 10 MG

REACTIONS (2)
  - Suicide attempt [Unknown]
  - Hypotension [Recovered/Resolved]

NARRATIVE: CASE EVENT DATE: 20180630
